FAERS Safety Report 23589404 (Version 4)
Quarter: 2025Q1

REPORT INFORMATION
  Report Type: Spontaneous
  Country: US (occurrence: US)
  Receive Date: 20240304
  Receipt Date: 20250318
  Transmission Date: 20250408
  Serious: No
  Sender: BIOGEN
  Company Number: US-BIOGEN-2024BI01252166

PATIENT
  Sex: Male

DRUGS (1)
  1. VUMERITY [Suspect]
     Active Substance: DIROXIMEL FUMARATE
     Indication: Multiple sclerosis
     Route: 050
     Dates: start: 20230207

REACTIONS (5)
  - Multiple sclerosis [Unknown]
  - Blister [Unknown]
  - Limb injury [Unknown]
  - Decubitus ulcer [Unknown]
  - Pain [Unknown]
